FAERS Safety Report 5145821-5 (Version None)
Quarter: 2006Q4

REPORT INFORMATION
  Report Type: 
  Country: None (occurrence: None)
  Receive Date: 20061108
  Receipt Date: 20061019
  Transmission Date: 20070319
  Serious: Yes (Other)
  Sender: FDA-Public Use
  Company Number: PHBS2006JP16354

PATIENT
  Age: 39 Year
  Sex: Female

DRUGS (3)
  1. TOLEDOMIN [Suspect]
     Dosage: 50 MG/DAY
     Route: 048
     Dates: start: 20050210
  2. DEPAS [Concomitant]
     Dosage: 1.5 MG
     Route: 048
     Dates: start: 20050210
  3. LUDIOMIL [Suspect]
     Dosage: 30 MG/DAY
     Route: 048
     Dates: start: 20050210, end: 20050201

REACTIONS (1)
  - ERYTHEMA MULTIFORME [None]
